FAERS Safety Report 9987059 (Version 1)
Quarter: 2014Q1

REPORT INFORMATION
  Report Type: Report from Study
  Country: US (occurrence: US)
  Receive Date: 20140307
  Receipt Date: 20140307
  Transmission Date: 20141002
  Serious: No
  Sender: FDA-Public Use
  Company Number: US-ABBVIE-13P-163-1080458-00

PATIENT
  Age: 49 Year
  Sex: Female

DRUGS (13)
  1. HUMIRA [Suspect]
     Indication: RHEUMATOID ARTHRITIS
     Dates: start: 201011, end: 201101
  2. HUMIRA [Suspect]
     Dates: start: 201101
  3. OTC ZYRTEC [Concomitant]
     Indication: HYPERSENSITIVITY
     Dosage: DAILY
  4. SYNTHROID [Concomitant]
     Indication: AUTOIMMUNE THYROIDITIS
  5. SPIRONOLACTONE [Concomitant]
     Indication: DIURETIC THERAPY
  6. SPIRONOLACTONE [Concomitant]
     Indication: ACNE
  7. METOPROLOL [Concomitant]
     Indication: HYPERTENSION
  8. MEDICINAL MARIJUANA [Concomitant]
     Indication: PAIN
  9. MEDICINAL MARIJUANA [Concomitant]
     Indication: INSOMNIA
  10. VITAMIN B [Concomitant]
     Indication: SUPPLEMENTATION THERAPY
  11. VITAMIN D [Concomitant]
     Indication: SUPPLEMENTATION THERAPY
  12. PROBIOTICS [Concomitant]
     Indication: SUPPLEMENTATION THERAPY
  13. OMEGAS [Concomitant]
     Indication: SUPPLEMENTATION THERAPY

REACTIONS (7)
  - Fatigue [Not Recovered/Not Resolved]
  - Arthralgia [Not Recovered/Not Resolved]
  - Joint stiffness [Not Recovered/Not Resolved]
  - Drug effect decreased [Not Recovered/Not Resolved]
  - Breast mass [Unknown]
  - Sensation of heaviness [Not Recovered/Not Resolved]
  - Rash papular [Unknown]
